FAERS Safety Report 4652739-0 (Version None)
Quarter: 2005Q2

REPORT INFORMATION
  Report Type: 
  Country: None (occurrence: None)
  Receive Date: 20050502
  Receipt Date: 20050421
  Transmission Date: 20051028
  Serious: Yes (Other)
  Sender: FDA-Public Use
  Company Number: 2005063060

PATIENT
  Age: 45 Year
  Sex: Female
  Weight: 58.514 kg

DRUGS (1)
  1. EMETROL (GLUCOSE, FRUCTOSE, PHOSPHORIC ACID) [Suspect]
     Indication: ULCER
     Dosage: ONE TSP 8 TO 0 TIMES TOTAL, ORAL
     Route: 048
     Dates: start: 20050416, end: 20050416

REACTIONS (4)
  - MALAISE [None]
  - NAUSEA [None]
  - POOR QUALITY DRUG ADMINISTERED [None]
  - VOMITING [None]
